FAERS Safety Report 9034712 (Version 3)
Quarter: 2013Q1

REPORT INFORMATION
  Report Type: Spontaneous
  Country: JP (occurrence: JP)
  Receive Date: 20130128
  Receipt Date: 20130221
  Transmission Date: 20140127
  Serious: Yes (Hospitalization)
  Sender: FDA-Public Use
  Company Number: JP-GLAXOSMITHKLINE-B0862456A

PATIENT
  Age: 61 Year
  Sex: Female

DRUGS (9)
  1. LAMICTAL [Suspect]
     Indication: BIPOLAR I DISORDER
     Dosage: 25MG PER DAY
     Route: 048
     Dates: start: 201207, end: 2012
  2. LAMICTAL [Suspect]
     Indication: BIPOLAR I DISORDER
     Dosage: 50MG PER DAY
     Route: 048
     Dates: start: 2012, end: 2012
  3. LAMICTAL [Suspect]
     Indication: BIPOLAR I DISORDER
     Dosage: 75MG PER DAY
     Route: 048
     Dates: start: 2012, end: 2012
  4. LAMICTAL [Suspect]
     Indication: BIPOLAR I DISORDER
     Dosage: 100MG PER DAY
     Route: 048
     Dates: start: 2012, end: 20121213
  5. LAMICTAL [Suspect]
     Indication: BIPOLAR I DISORDER
     Dosage: 125MG PER DAY
     Route: 048
     Dates: start: 20121214, end: 20130103
  6. LAMICTAL [Suspect]
     Indication: BIPOLAR I DISORDER
     Dosage: 150MG PER DAY
     Route: 048
     Dates: start: 20130104, end: 20130108
  7. LIMAS [Suspect]
     Indication: BIPOLAR DISORDER
     Route: 048
     Dates: start: 2012, end: 2012
  8. DEPAS [Concomitant]
     Indication: INSOMNIA
     Dosage: 1MG PER DAY
     Route: 048
  9. DEPAS [Concomitant]
     Indication: ANXIETY
     Route: 048
     Dates: start: 20121130

REACTIONS (12)
  - Rash [Unknown]
  - Conjunctival hyperaemia [Unknown]
  - Erythema [Unknown]
  - Pruritus [Unknown]
  - Abnormal sensation in eye [Unknown]
  - Chapped lips [Unknown]
  - Chapped lips [Unknown]
  - Yawning [Unknown]
  - Ear pain [Unknown]
  - Rash [Unknown]
  - Skin warm [Unknown]
  - Hyperacusis [Unknown]
